FAERS Safety Report 9859195 (Version 4)
Quarter: 2014Q1

REPORT INFORMATION
  Report Type: Spontaneous
  Country: US (occurrence: None)
  Receive Date: 20140129
  Receipt Date: 20140327
  Transmission Date: 20141002
  Serious: Yes (Other)
  Sender: FDA-Public Use
  Company Number: 2014-US-000595

PATIENT
  Age: 56 Year
  Sex: Male

DRUGS (9)
  1. XYREM (SODIUM OXYBATE) ORAL SOLUTION, 500MG/ML [Suspect]
     Indication: PRODUCT USED FOR UNKNOWN INDICATION
     Route: 048
     Dates: start: 200504
  2. CYMBALTA [Concomitant]
  3. WELLBUTRIN XR (BUPROPION HYDROCHLORIDE) (TABLET-EXTENDED RELEASE) (BUPROPION HYDROCHLORIDE) [Concomitant]
  4. CLONAZEPAM (CLONAZEPAM) (CLONAZEPAM) [Concomitant]
  5. OXYCONTIN (OXYCODONE HYDROCHLORIDE) [Concomitant]
  6. OXYCODONE (OXYCODONE HYDROCHLORIDE) (OXYCODONE) [Concomitant]
  7. MULTIVITAMINS (ASCORBIC ACID, ERGOCALICIFEROL, FOLIC ACID, NICOTINAMIDE, PANTHENOL, RETINOL, RIBOFLAVIN, THIAMINE HYDROCHLORIDE) [Concomitant]
  8. CALCIUM (CALCIUM) [Concomitant]
  9. MAGNESIUM (MAGNESIUM CARBONATE) [Concomitant]

REACTIONS (17)
  - Rheumatoid arthritis [None]
  - Muscular weakness [None]
  - Myalgia [None]
  - Asthenia [None]
  - Movement disorder [None]
  - Back pain [None]
  - Weight increased [None]
  - Insomnia [None]
  - Pain [None]
  - Anxiety [None]
  - Rotator cuff syndrome [None]
  - Memory impairment [None]
  - Suicidal ideation [None]
  - Influenza [None]
  - Cataplexy [None]
  - Blood pressure increased [None]
  - Off label use [None]
